FAERS Safety Report 9783358 (Version 1)
Quarter: 2013Q4

REPORT INFORMATION
  Report Type: Spontaneous
  Country: US (occurrence: None)
  Receive Date: 20131223
  Receipt Date: 20131223
  Transmission Date: 20140711
  Serious: Yes (Other)
  Sender: FDA-Public Use
  Company Number: ANTARES-2013-000003

PATIENT
  Age: 60 Year
  Sex: Male
  Weight: 82.6 kg

DRUGS (6)
  1. METHOTREXATE (METHOTREXATE) [Suspect]
     Indication: B-CELL LYMPHOMA
     Route: 042
  2. CYCLOPH W/DOXORUB/PREDNIS/RITUXIMAB/VINCRIST (CYCLOPHOSPHAMIDE, DOXORUBICIN, PREDNISOLONE, RITUXIMAB, VINCRISTINE) [Concomitant]
  3. ASPIRIN (ACETYLSALICYLIC ACID) [Concomitant]
  4. METOPROLOL [Concomitant]
  5. SODIUM BICARBONATE [Concomitant]
  6. FUROSEMIDE [Concomitant]

REACTIONS (2)
  - Nephropathy toxic [None]
  - Cardiac failure [None]
